FAERS Safety Report 9326311 (Version 1)
Quarter: 2013Q2

REPORT INFORMATION
  Report Type: Report from Study
  Country: US (occurrence: US)
  Receive Date: 20130604
  Receipt Date: 20130604
  Transmission Date: 20140414
  Serious: Yes (Death, Hospitalization, Other)
  Sender: FDA-Public Use
  Company Number: US-TEVA-408558USA

PATIENT
  Age: 66 Year
  Sex: Male
  Weight: 91.6 kg

DRUGS (10)
  1. DAUNORUBICIN [Suspect]
     Indication: ACUTE MYELOID LEUKAEMIA
     Dosage: IV DAYS 1-3X1-2 CYCLES
     Dates: start: 20130422, end: 20130509
  2. CYTARABINE [Suspect]
     Indication: ACUTE MYELOID LEUKAEMIA
     Dosage: IV DAYS 1-7 X 1-2 CYCLES
     Dates: start: 20130422, end: 20130514
  3. HYDROMORPHONE [Concomitant]
     Dosage: PCA
  4. LORAZEPAM [Concomitant]
     Dosage: 0.5-1MG
  5. CEFEPIME [Concomitant]
     Dosage: 2 G IN 0.9% (NS) 100 ML IVPB
  6. FLUCONAZOLE [Concomitant]
     Dosage: IN 0.9% NS INFUSION 200 MG
  7. METRONIDAZOLE [Concomitant]
     Dosage: INFUSION
  8. VALACICOLVIR [Concomitant]
  9. VANCOMYCIN [Concomitant]
     Dosage: IN 0.9% (NS) 30 ML
  10. VANCOMYCIN [Concomitant]
     Dosage: 25 MG/ML
     Route: 048

REACTIONS (4)
  - Enterocolitis infectious [Fatal]
  - Diarrhoea [Unknown]
  - Renal failure acute [Unknown]
  - Febrile neutropenia [Unknown]
